FAERS Safety Report 8322294-2 (Version None)
Quarter: 2012Q2

REPORT INFORMATION
  Report Type: 
  Country: None (occurrence: None)
  Receive Date: 20120430
  Receipt Date: 20120420
  Transmission Date: 20120825
  Serious: Yes (Other)
  Sender: FDA-Public Use
  Company Number: PHHY2012FR035751

PATIENT

DRUGS (1)
  1. EVEROLIMUS [Suspect]
     Indication: KAPOSI'S SARCOMA
     Dosage: 10 MG, QD

REACTIONS (3)
  - GASTROINTESTINAL HAEMORRHAGE [None]
  - GASTRIC CANCER [None]
  - NEOPLASM MALIGNANT [None]
